FAERS Safety Report 8932132 (Version 1)
Quarter: 2012Q4

REPORT INFORMATION
  Report Type: 
  Country: GB (occurrence: GB)
  Receive Date: 20121128
  Receipt Date: 20121128
  Transmission Date: 20130627
  Serious: Yes (Other)
  Sender: FDA-Public Use
  Company Number: GB-PFIZER INC-2012295900

PATIENT
  Age: 36 Year
  Sex: Male

DRUGS (2)
  1. LYRICA [Suspect]
     Indication: ANXIETY
     Dosage: 300mg tapering off
     Route: 048
  2. INFLUENZA VIRUS VACCINE [Concomitant]

REACTIONS (4)
  - Insomnia [Recovering/Resolving]
  - Anxiety [Recovering/Resolving]
  - Fatigue [Not Recovered/Not Resolved]
  - Mood altered [Not Recovered/Not Resolved]
